FAERS Safety Report 6278932-1 (Version None)
Quarter: 2009Q3

REPORT INFORMATION
  Report Type: 
  Country: None (occurrence: None)
  Receive Date: 20090723
  Receipt Date: 20090722
  Transmission Date: 20100115
  Serious: Yes (Death, Life-Threatening)
  Sender: FDA-Public Use
  Company Number: DE-JNJFOC-20090707155

PATIENT
  Age: 88 Year
  Sex: Male

DRUGS (1)
  1. TAVANIC [Suspect]
     Indication: PNEUMONIA
     Route: 042

REACTIONS (3)
  - ACUTE HEPATIC FAILURE [None]
  - HYPOGLYCAEMIA [None]
  - LACTIC ACIDOSIS [None]
